FAERS Safety Report 4602193-X (Version None)
Quarter: 2005Q2

REPORT INFORMATION
  Report Type: 
  Country: None (occurrence: None)
  Receive Date: 20050215
  Receipt Date: 20041011
  Transmission Date: 20051028
  Serious: Yes (Other)
  Sender: FDA-Public Use
  Company Number: MC200400685

PATIENT
  Sex: Female

DRUGS (2)
  1. ANGIOMAX [Suspect]
     Dosage: 0.75 MG/KG,BOLUS, IV BOLUS
     Route: 040
     Dates: start: 20040901, end: 20040901
  2. ANGIOMAX [Suspect]
     Dosage: 1.75 MG/KG, HR, INTRAVENOUS
     Route: 042
     Dates: start: 20040901, end: 20040901

REACTIONS (1)
  - STENT OCCLUSION [None]
